FAERS Safety Report 6089256-X (Version None)
Quarter: 2009Q1

REPORT INFORMATION
  Report Type: 
  Country: None (occurrence: None)
  Receive Date: 20090224
  Receipt Date: 20090218
  Transmission Date: 20090719
  Serious: Yes (Disabling)
  Sender: FDA-Public Use
  Company Number: GB-MERCK-0902GBR00063

PATIENT
  Age: 70 Year

DRUGS (2)
  1. ZETIA [Suspect]
     Indication: HYPERCHOLESTEROLAEMIA
     Route: 048
     Dates: start: 20080830, end: 20090114
  2. ZETIA [Suspect]
     Route: 065

REACTIONS (11)
  - ABDOMINAL DISCOMFORT [None]
  - AFFECT LABILITY [None]
  - ANGINA PECTORIS [None]
  - ANGIOEDEMA [None]
  - CONTUSION [None]
  - DIARRHOEA [None]
  - FLATULENCE [None]
  - HYPERTENSION [None]
  - PAIN [None]
  - PANIC REACTION [None]
  - TEARFULNESS [None]
